FAERS Safety Report 5740766-1 (Version None)
Quarter: 2008Q2

REPORT INFORMATION
  Report Type: 
  Country: None (occurrence: None)
  Receive Date: 20080515
  Receipt Date: 20080118
  Transmission Date: 20081010
  Serious: No
  Sender: FDA-Public Use
  Company Number: WAES 0712USA01428

PATIENT
  Age: 46 Year
  Sex: Female

DRUGS (5)
  1. TAB ISENTRESS [Suspect]
     Indication: HIV INFECTION
     Dosage: 400 MG/BID/PO; 400 MG/BID/PO
     Route: 048
     Dates: start: 20071105, end: 20071113
  2. TAB ISENTRESS [Suspect]
     Indication: HIV INFECTION
     Dosage: 400 MG/BID/PO; 400 MG/BID/PO
     Route: 048
     Dates: start: 20071119
  3. TRUVADA [Concomitant]
  4. DARUNAVIR [Concomitant]
  5. RITONAVIR [Concomitant]

REACTIONS (1)
  - RASH GENERALISED [None]
